FAERS Safety Report 4576530-9 (Version None)
Quarter: 2005Q1

REPORT INFORMATION
  Report Type: 
  Country: None (occurrence: None)
  Receive Date: 20050119
  Receipt Date: 20040428
  Transmission Date: 20050727
  Serious: Yes (Other)
  Sender: FDA-Public Use
  Company Number: A03200401332

PATIENT
  Age: 62 Year
  Sex: Female
  Weight: 80.7403 kg

DRUGS (3)
  1. PLAVIX [Suspect]
     Indication: ANGIOPLASTY
     Dosage: 75 MG QD - ORAL
     Route: 048
     Dates: start: 20031201, end: 20040401
  2. PLAVIX [Suspect]
     Indication: STENT PLACEMENT
     Dosage: 75 MG QD - ORAL
     Route: 048
     Dates: start: 20031201, end: 20040401
  3. ASPIRIN [Suspect]
     Dosage: 81 MG QD - ORAL
     Route: 048

REACTIONS (3)
  - CONTUSION [None]
  - DRUG INTERACTION [None]
  - RETINAL HAEMORRHAGE [None]
